FAERS Safety Report 10172599 (Version 1)
Quarter: 2014Q2

REPORT INFORMATION
  Report Type: Spontaneous
  Country: CH (occurrence: CH)
  Receive Date: 20140515
  Receipt Date: 20140515
  Transmission Date: 20141212
  Serious: Yes (Hospitalization)
  Sender: FDA-Public Use
  Company Number: CH-MERCK-1405CHE003417

PATIENT
  Age: 88 Year
  Sex: Male

DRUGS (16)
  1. REMERON [Suspect]
     Dosage: 15 MG, QD, CHRONIC TREATMENT
     Route: 048
  2. TEMGESIC [Suspect]
     Indication: ANALGESIC THERAPY
     Dosage: 0.2 MG, BID,
     Route: 048
     Dates: start: 20140221, end: 20140223
  3. TEMGESIC [Suspect]
     Dosage: 0.2 MG, QD
     Route: 048
     Dates: start: 20140224, end: 20140226
  4. TEMGESIC [Suspect]
     Dosage: ADDITIONALLY 0.2 MG UPTO FOUR TIMES DAILY AS NECCESSAY
     Dates: start: 20140221, end: 20140226
  5. IMODIUM [Suspect]
     Dosage: 2 MG, BID
     Route: 048
     Dates: start: 20131126
  6. TEMESTA [Suspect]
     Dosage: 1 MG, TID
     Route: 048
     Dates: start: 20140221, end: 20140226
  7. CITALOPRAM [Suspect]
     Dosage: 30 MG, QD, CHRONIC TREATMENT
     Route: 048
  8. DISTRANEURIN [Suspect]
     Dosage: 300 MG, QD, CHRONIC TREATMENT
     Route: 048
  9. QUETIAPINE FUMARATE [Suspect]
     Dosage: 50 MG, BID, CHRONIC TREATMENT
     Route: 048
  10. SINTROM [Concomitant]
     Route: 048
  11. LOSARTAN POTASSIUM [Concomitant]
     Dosage: 12.5 MG, QD
     Route: 048
  12. DAFALGAN [Concomitant]
     Dosage: 1000 MG, TID
     Route: 048
     Dates: start: 20140221
  13. FRESUBIN ENERGY [Concomitant]
     Dosage: 1 PACKET IN THE AFTERNOON
     Route: 048
     Dates: start: 20140221
  14. TRANSIPEG [Concomitant]
     Dosage: 1 SACHET IN THE MORNING
     Route: 048
     Dates: start: 20140221
  15. TOREM [Concomitant]
     Indication: GENERALISED OEDEMA
     Dosage: 10 MG, QD
     Route: 048
  16. BELOC (METOPROLOL SUCCINATE) [Concomitant]
     Indication: HYPERTENSION
     Dosage: 25 MG, QD
     Route: 048
     Dates: start: 20140221

REACTIONS (1)
  - Altered state of consciousness [Recovered/Resolved]
